FAERS Safety Report 15359455 (Version 1)
Quarter: 2018Q3

REPORT INFORMATION
  Report Type: Spontaneous
  Country: GB (occurrence: GB)
  Receive Date: 20180907
  Receipt Date: 20180907
  Transmission Date: 20181010
  Serious: Yes (Hospitalization, Other)
  Sender: FDA-Public Use
  Company Number: GB-TEVA-2018-GB-952080

PATIENT
  Age: 71 Year
  Sex: Female
  Weight: 60.77 kg

DRUGS (3)
  1. INDAPAMIDE. [Suspect]
     Active Substance: INDAPAMIDE
     Indication: HYPERTENSION
     Route: 048
     Dates: start: 20180724, end: 20180805
  2. LERCANIDIPINE [Concomitant]
     Active Substance: LERCANIDIPINE
     Route: 065
  3. CANDESARTAN CILEXETIL. [Concomitant]
     Active Substance: CANDESARTAN CILEXETIL
     Indication: HYPERTENSION
     Route: 048
     Dates: start: 20180401, end: 20180720

REACTIONS (8)
  - Chest discomfort [Unknown]
  - Burning sensation [Unknown]
  - Nausea [Recovering/Resolving]
  - Electrolyte imbalance [Recovering/Resolving]
  - Dizziness [Recovering/Resolving]
  - Chest pain [Unknown]
  - Gastric pH decreased [Recovering/Resolving]
  - Throat irritation [Unknown]
